FAERS Safety Report 5449810-2 (Version None)
Quarter: 2007Q3

REPORT INFORMATION
  Report Type: 
  Country: None (occurrence: None)
  Receive Date: 20070910
  Receipt Date: 20070829
  Transmission Date: 20080115
  Serious: Yes (Hospitalization, Other)
  Sender: FDA-Public Use
  Company Number: 114-C5013-07081819

PATIENT
  Age: 80 Year
  Sex: Male
  Weight: 84 kg

DRUGS (9)
  1. CC-5013 (LENALIDOMIDE) (CAPSULES) [Suspect]
     Indication: MULTIPLE MYELOMA
     Dosage: 25 MG, DAILY, ORAL 25 MG, DAILY, ORAL
     Route: 048
     Dates: start: 20070611, end: 20070629
  2. CC-5013 (LENALIDOMIDE) (CAPSULES) [Suspect]
     Indication: MULTIPLE MYELOMA
     Dosage: 25 MG, DAILY, ORAL 25 MG, DAILY, ORAL
     Route: 048
     Dates: start: 20070709, end: 20070730
  3. RANITIDINE [Concomitant]
  4. SPIRONOLACTONE [Concomitant]
  5. FUROSEMIDE [Concomitant]
  6. MOVICOLON (NULYTELY) [Concomitant]
  7. DIFLUCAN [Concomitant]
  8. MARCUMAR [Concomitant]
  9. ASCAL (ACETYLSALICYLATE CALCIUM) [Concomitant]

REACTIONS (3)
  - CARDIAC FAILURE [None]
  - HYPERVENTILATION [None]
  - MUSCLE SPASMS [None]
